FAERS Safety Report 14003283 (Version 1)
Quarter: 2017Q3

REPORT INFORMATION
  Report Type: Spontaneous
  Country: US (occurrence: US)
  Receive Date: 20170922
  Receipt Date: 20170922
  Transmission Date: 20171128
  Serious: No
  Sender: FDA-Public Use
  Company Number: US-IMPAX LABORATORIES, INC-2017-IPXL-01182

PATIENT
  Age: 91 Year
  Sex: Female
  Weight: 72 kg

DRUGS (3)
  1. BUDESONIDE. [Suspect]
     Active Substance: BUDESONIDE
     Indication: LUNG DISORDER
     Dosage: INHALATION SUSPENSION 0.5 MG/2 ML, 1 VIAL TWICE A DAY
     Route: 050
  2. TUMS [Concomitant]
     Active Substance: CALCIUM CARBONATE
     Indication: PRODUCT USED FOR UNKNOWN INDICATION
     Dosage: UNK
     Route: 065
  3. BUDESONIDE. [Suspect]
     Active Substance: BUDESONIDE
     Indication: DYSPNOEA
     Dosage: INHALATION SUSPENSION 0.5 MG/2 ML, 1 VIAL TWICE A DAY
     Route: 050
     Dates: start: 20170420

REACTIONS (3)
  - Product size issue [Unknown]
  - Vomiting [Recovered/Resolved]
  - Nausea [Recovered/Resolved]

NARRATIVE: CASE EVENT DATE: 20170420
